FAERS Safety Report 10195372 (Version 2)
Quarter: 2014Q3

REPORT INFORMATION
  Report Type: Report from Study
  Country: NZ (occurrence: NZ)
  Receive Date: 20140526
  Receipt Date: 20140702
  Transmission Date: 20150326
  Serious: Yes (Hospitalization)
  Sender: FDA-Public Use
  Company Number: PHHY2014NZ060835

PATIENT
  Age: 53 Year
  Sex: Female

DRUGS (13)
  1. FOSAMAX PLUS D [Concomitant]
     Active Substance: ALENDRONATE SODIUM\CHOLECALCIFEROL
     Dosage: 70 MG, WEEKLY ON MONDAY
  2. CLOZARIL [Suspect]
     Active Substance: CLOZAPINE
     Dosage: 125 MG MANE AND 700 MG NOCTE
     Route: 048
     Dates: start: 19960429, end: 20140421
  3. CLOZARIL [Suspect]
     Active Substance: CLOZAPINE
     Dosage: 700 MG NOCTE
     Route: 048
     Dates: start: 20140423
  4. MULTIVIT//VITAMINS NOS [Concomitant]
     Active Substance: VITAMINS
     Dosage: 2 DF, MANE
  5. PHENYTOIN SODIUM. [Concomitant]
     Active Substance: PHENYTOIN SODIUM
     Dosage: 200 MG, MANE
     Route: 048
  6. LAXSOL [Concomitant]
     Dosage: 2 DF, BID
  7. IPRATROPIUM BROMIDE. [Concomitant]
     Active Substance: IPRATROPIUM BROMIDE
     Indication: SALIVARY HYPERSECRETION
     Dosage: PRN
  8. AMISULPRIDE [Concomitant]
     Active Substance: AMISULPRIDE
     Dosage: 1 DF, NOCTE
  9. SODIUM VALPROATE [Concomitant]
     Active Substance: VALPROATE SODIUM
     Dosage: 1 G, BID
     Route: 048
  10. LACTULOSE. [Concomitant]
     Active Substance: LACTULOSE
     Dosage: 20 ML, PRN UPTO BD
     Route: 048
  11. OMEPRAZOLE. [Concomitant]
     Active Substance: OMEPRAZOLE
     Dosage: 40 MG, NOCTE
     Route: 048
  12. PARACETAMOL [Concomitant]
     Active Substance: ACETAMINOPHEN
     Dosage: 1 G, PRN UPTO QID 1 MONTH
     Route: 048
  13. PHENYTOIN. [Concomitant]
     Active Substance: PHENYTOIN
     Dosage: 230 MG, NOCTE
     Route: 048

REACTIONS (13)
  - Gastrointestinal haemorrhage [Unknown]
  - Atelectasis [Unknown]
  - Colitis ischaemic [Unknown]
  - Abdominal pain upper [Unknown]
  - Blood sodium increased [Unknown]
  - Nausea [Unknown]
  - Pyrexia [Unknown]
  - Aneurysm [Recovering/Resolving]
  - Platelet count increased [Unknown]
  - Colitis [Unknown]
  - Effusion [Unknown]
  - Haematochezia [Unknown]
  - Abdominal tenderness [Unknown]

NARRATIVE: CASE EVENT DATE: 20140422
